FAERS Safety Report 25189543 (Version 1)
Quarter: 2025Q2

REPORT INFORMATION
  Report Type: Report from Study
  Country: CA (occurrence: CA)
  Receive Date: 20250411
  Receipt Date: 20250411
  Transmission Date: 20250717
  Serious: Yes (Hospitalization, Other)
  Sender: NOVARTIS
  Company Number: CA-002147023-NVSC2025CA049251

PATIENT
  Age: 37 Year
  Sex: Male

DRUGS (1)
  1. MAYZENT [Suspect]
     Active Substance: SIPONIMOD
     Indication: Secondary progressive multiple sclerosis
     Dosage: 2 MG, QD
     Route: 048
     Dates: start: 20250312, end: 20250315

REACTIONS (11)
  - Fall [Unknown]
  - Syncope [Unknown]
  - Dizziness [Recovering/Resolving]
  - Nausea [Unknown]
  - Asthenia [Unknown]
  - Tremor [Unknown]
  - Feeling abnormal [Unknown]
  - Anxiety [Unknown]
  - Constipation [Unknown]
  - Bladder disorder [Unknown]
  - Concomitant disease aggravated [Unknown]

NARRATIVE: CASE EVENT DATE: 20250314
